FAERS Safety Report 5703408-7 (Version None)
Quarter: 2008Q2

REPORT INFORMATION
  Report Type: 
  Country: None (occurrence: None)
  Receive Date: 20080411
  Receipt Date: 20080331
  Transmission Date: 20081010
  Serious: Yes (Other)
  Sender: FDA-Public Use
  Company Number: US-PFIZER INC-2008029095

PATIENT
  Sex: Female
  Weight: 61 kg

DRUGS (4)
  1. CHANTIX [Suspect]
     Dates: start: 20080301, end: 20080301
  2. SYNTHROID [Concomitant]
     Indication: HYPOTHYROIDISM
  3. FOSAMAX [Concomitant]
  4. ALL OTHER THERAPEUTIC PRODUCTS [Concomitant]
     Route: 061

REACTIONS (2)
  - ACTIVITIES OF DAILY LIVING IMPAIRED [None]
  - NAUSEA [None]
